FAERS Safety Report 6020653-4 (Version None)
Quarter: 2008Q4

REPORT INFORMATION
  Report Type: 
  Country: None (occurrence: None)
  Receive Date: 20081224
  Receipt Date: 20081224
  Transmission Date: 20090506
  Serious: Yes (Other)
  Sender: FDA-Public Use
  Company Number: None

PATIENT
  Sex: Female
  Weight: 75.7507 kg

DRUGS (3)
  1. SIMVASTATIN [Suspect]
     Indication: BLOOD CHOLESTEROL INCREASED
     Dosage: ONE TABLET ONE ADAY AT BED TIME BY MOUTH
     Route: 048
     Dates: start: 20080609, end: 20080717
  2. WELCHOL [Suspect]
     Dosage: ONE TABLET ONE A DAY AT BED TIME BY MOUTH
     Route: 048
     Dates: start: 20080904, end: 20080927
  3. ZOCOR [Suspect]

REACTIONS (7)
  - ACTIVITIES OF DAILY LIVING IMPAIRED [None]
  - FATIGUE [None]
  - GAIT DISTURBANCE [None]
  - JOINT SWELLING [None]
  - MUSCULAR WEAKNESS [None]
  - MYALGIA [None]
  - OEDEMA PERIPHERAL [None]
